FAERS Safety Report 4577625-6 (Version None)
Quarter: 2005Q1

REPORT INFORMATION
  Report Type: 
  Country: None (occurrence: None)
  Receive Date: 20050208
  Receipt Date: 20050126
  Transmission Date: 20050727
  Serious: Yes (Other)
  Sender: FDA-Public Use
  Company Number: CEL-2005-00130-SLO

PATIENT
  Sex: Female

DRUGS (1)
  1. DIPENTUM [Suspect]
     Indication: COLITIS ULCERATIVE
     Dosage: PO
     Route: 048

REACTIONS (3)
  - DEMENTIA ALZHEIMER'S TYPE [None]
  - DYSPHAGIA [None]
  - ORAL MUCOSAL DISCOLOURATION [None]
